FAERS Safety Report 8544418-4 (Version None)
Quarter: 2012Q3

REPORT INFORMATION
  Report Type: 
  Country: None (occurrence: None)
  Receive Date: 20120727
  Receipt Date: 20120718
  Transmission Date: 20120928
  Serious: Yes (Death, Hospitalization)
  Sender: FDA-Public Use
  Company Number: GT-GENZYME-POMP-1002302

PATIENT
  Sex: Male
  Weight: 6.1 kg

DRUGS (18)
  1. UNASYN [Concomitant]
     Indication: PRODUCT USED FOR UNKNOWN INDICATION
  2. AMIKACIN [Concomitant]
     Indication: PRODUCT USED FOR UNKNOWN INDICATION
  3. VANCOMYCIN [Concomitant]
  4. METHADONE HYDROCHLORIDE [Concomitant]
     Indication: PRODUCT USED FOR UNKNOWN INDICATION
  5. FOSFOMYCIN [Concomitant]
     Indication: PRODUCT USED FOR UNKNOWN INDICATION
  6. AMPICILINA SULBACTAM [Concomitant]
     Indication: PRODUCT USED FOR UNKNOWN INDICATION
  7. IMIPENEM [Concomitant]
     Indication: PRODUCT USED FOR UNKNOWN INDICATION
  8. MYOZYME [Suspect]
     Indication: GLYCOGEN STORAGE DISEASE TYPE II
     Dosage: 20 MG/KG, Q2W
     Route: 042
     Dates: start: 20120507, end: 20120507
  9. CLINDAMYCIN [Concomitant]
     Indication: PRODUCT USED FOR UNKNOWN INDICATION
  10. SILDENAFIL [Concomitant]
     Indication: PRODUCT USED FOR UNKNOWN INDICATION
  11. DIGOXIN [Concomitant]
     Indication: PRODUCT USED FOR UNKNOWN INDICATION
  12. AMPHOTERICIN B [Concomitant]
  13. TIGECYCLINE [Concomitant]
  14. DIAZEPAM [Concomitant]
     Indication: PRODUCT USED FOR UNKNOWN INDICATION
  15. MEROPENEM [Concomitant]
     Indication: PRODUCT USED FOR UNKNOWN INDICATION
  16. METHYLPREDNISOLONE [Concomitant]
     Indication: PRODUCT USED FOR UNKNOWN INDICATION
  17. CEFOTAXIME SODIUM [Concomitant]
     Indication: PRODUCT USED FOR UNKNOWN INDICATION
  18. PIPERACILLIN AND TAZOBACTAM [Concomitant]
     Indication: PRODUCT USED FOR UNKNOWN INDICATION

REACTIONS (2)
  - CARDIO-RESPIRATORY ARREST [None]
  - PNEUMONIA [None]
